FAERS Safety Report 19036807 (Version 1)
Quarter: 2021Q1

REPORT INFORMATION
  Report Type: Spontaneous
  Country: US (occurrence: US)
  Receive Date: 20210321
  Receipt Date: 20210321
  Transmission Date: 20210420
  Serious: No
  Sender: FDA-Public Use
  Company Number: None

PATIENT
  Age: 68 Year
  Sex: Female
  Weight: 64.8 kg

DRUGS (4)
  1. VENLAFAXINE HCL [Suspect]
     Active Substance: VENLAFAXINE HYDROCHLORIDE
     Indication: DEPRESSION
     Dosage: ?          QUANTITY:2 TABLET(S);?
     Route: 048
     Dates: start: 20160121
  2. VITAMIN B12 [Concomitant]
     Active Substance: CYANOCOBALAMIN
  3. BUPROBION [Concomitant]
  4. D [Concomitant]

REACTIONS (7)
  - Gait disturbance [None]
  - Nausea [None]
  - Vision blurred [None]
  - Vertigo [None]
  - Drug withdrawal syndrome [None]
  - Balance disorder [None]
  - Shock symptom [None]

NARRATIVE: CASE EVENT DATE: 20210317
